FAERS Safety Report 7441699-5 (Version None)
Quarter: 2011Q2

REPORT INFORMATION
  Report Type: 
  Country: None (occurrence: None)
  Receive Date: 20110428
  Receipt Date: 20110118
  Transmission Date: 20111010
  Serious: No
  Sender: FDA-Public Use
  Company Number: A0908152A

PATIENT

DRUGS (1)
  1. SEREVENT [Suspect]

REACTIONS (1)
  - HYPERSENSITIVITY [None]
